FAERS Safety Report 8822944 (Version 1)
Quarter: 2012Q4

REPORT INFORMATION
  Report Type: Report from Study
  Country: JP (occurrence: JP)
  Receive Date: 20121003
  Receipt Date: 20121003
  Transmission Date: 20130627
  Serious: Yes (Other)
  Sender: FDA-Public Use
  Company Number: PHHY2012JP085230

PATIENT
  Age: 39 Year
  Sex: Male
  Weight: 96 kg

DRUGS (46)
  1. LEPONEX / CLOZARIL [Suspect]
     Indication: SCHIZOPHRENIA, UNDIFFERENTIATED TYPE
     Dosage: 12.5 mg
     Route: 048
     Dates: start: 20110817, end: 20110817
  2. LEPONEX / CLOZARIL [Suspect]
     Dosage: 25 mg
     Route: 048
     Dates: start: 20110818, end: 20110820
  3. LEPONEX / CLOZARIL [Suspect]
     Dosage: 50 mg
     Route: 048
     Dates: start: 20110821, end: 20110823
  4. LEPONEX / CLOZARIL [Suspect]
     Dosage: 75 mg
     Route: 048
     Dates: start: 20110824, end: 20110826
  5. LEPONEX / CLOZARIL [Suspect]
     Dosage: 100 mg, UNK
     Route: 048
     Dates: start: 20110827, end: 20110828
  6. LEPONEX / CLOZARIL [Suspect]
     Dosage: 125 mg, UNK
     Route: 048
     Dates: start: 20110829, end: 20110830
  7. LEPONEX / CLOZARIL [Suspect]
     Dosage: 150 mg, UNK
     Route: 048
     Dates: start: 20110831, end: 20110902
  8. LEPONEX / CLOZARIL [Suspect]
     Dosage: 175 mg, UNK
     Route: 048
     Dates: start: 20110903, end: 20110905
  9. LEPONEX / CLOZARIL [Suspect]
     Dosage: 200 mg, UNK
     Route: 048
     Dates: start: 20110906, end: 20110910
  10. LEPONEX / CLOZARIL [Suspect]
     Dosage: 300 mg, UNK
     Route: 048
     Dates: start: 20110911, end: 20110915
  11. LEPONEX / CLOZARIL [Suspect]
     Dosage: 400 mg, UNK
     Route: 048
     Dates: start: 20110916, end: 20110920
  12. LEPONEX / CLOZARIL [Suspect]
     Dosage: 500 mg, UNK
     Route: 048
     Dates: start: 20110921, end: 20110927
  13. LEPONEX / CLOZARIL [Suspect]
     Dosage: 600 mg, UNK
     Route: 048
     Dates: start: 20110928, end: 20110928
  14. LEPONEX / CLOZARIL [Suspect]
     Dosage: 500 mg, UNK
     Route: 048
     Dates: start: 20110929, end: 20111215
  15. LEPONEX / CLOZARIL [Suspect]
     Dosage: 550 mg, UNK
     Route: 048
     Dates: start: 20111216, end: 20111219
  16. LEPONEX / CLOZARIL [Suspect]
     Dosage: 425 mg, UNK
     Route: 048
     Dates: start: 20111220, end: 20111222
  17. LEPONEX / CLOZARIL [Suspect]
     Dosage: 400 mg, UNK
     Route: 048
     Dates: start: 20111223, end: 20120110
  18. LEPONEX / CLOZARIL [Suspect]
     Dosage: 375 mg, UNK
     Route: 048
     Dates: start: 20120111, end: 20120117
  19. LEPONEX / CLOZARIL [Suspect]
     Dosage: 350 mg, UNK
     Route: 048
     Dates: start: 20120118, end: 20120124
  20. LEPONEX / CLOZARIL [Suspect]
     Dosage: 325 mg, UNK
     Route: 048
     Dates: start: 20120125, end: 20120131
  21. LEPONEX / CLOZARIL [Suspect]
     Dosage: 300 mg, UNK
     Route: 048
     Dates: start: 20120201, end: 20120207
  22. LEPONEX / CLOZARIL [Suspect]
     Dosage: 250 mg, UNK
     Route: 048
     Dates: start: 20120208, end: 20120214
  23. LEPONEX / CLOZARIL [Suspect]
     Dosage: 200 mg, UNK
     Route: 048
     Dates: start: 20120215
  24. SULPIRIDE [Concomitant]
     Dosage: 1200 mg
     Route: 048
     Dates: start: 20110817
  25. SULPIRIDE [Concomitant]
     Dosage: 800 mg
     Route: 048
  26. SULPIRIDE [Concomitant]
     Dosage: 400 mg
     Route: 048
     Dates: end: 20110912
  27. ZYPREXA [Concomitant]
     Indication: SCHIZOPHRENIA, UNDIFFERENTIATED TYPE
     Dosage: 30 mg
     Route: 048
     Dates: start: 20110817
  28. ZYPREXA [Concomitant]
     Dosage: 20 mg
     Route: 048
  29. ZYPREXA [Concomitant]
     Dosage: 10 mg
     Route: 048
  30. ZYPREXA [Concomitant]
     Dosage: 5 mg
  31. ZYPREXA [Concomitant]
     Dosage: 10 mg
  32. LIMAS [Concomitant]
     Indication: SCHIZOPHRENIA, UNDIFFERENTIATED TYPE
     Dosage: 600 mg
     Route: 048
     Dates: start: 20110817
  33. ARTANE [Concomitant]
     Indication: SCHIZOPHRENIA, UNDIFFERENTIATED TYPE
     Dosage: 6 mg
     Route: 048
     Dates: start: 20110817, end: 20111019
  34. RIVOTRIL [Concomitant]
     Indication: SCHIZOPHRENIA, UNDIFFERENTIATED TYPE
     Dosage: 3 mg
     Route: 048
     Dates: start: 20110817
  35. RIVOTRIL [Concomitant]
     Dosage: 1.5 mg
     Route: 048
  36. RIVOTRIL [Concomitant]
     Dosage: 1 mg
     Route: 048
  37. RIVOTRIL [Concomitant]
     Dosage: 0.5 mg
     Route: 048
     Dates: end: 20111207
  38. MAGMITT [Concomitant]
     Indication: PROPHYLAXIS
     Dosage: 2970 mg
     Route: 048
     Dates: start: 20110817
  39. MAGMITT [Concomitant]
     Dosage: 990 mg
     Route: 048
  40. SLOWHEIM [Concomitant]
     Indication: SCHIZOPHRENIA, UNDIFFERENTIATED TYPE
     Dosage: 7.5 mg
     Route: 048
     Dates: start: 20110817, end: 20111214
  41. DEPAS [Concomitant]
     Indication: SCHIZOPHRENIA, UNDIFFERENTIATED TYPE
     Dosage: 1 mg
     Route: 048
     Dates: start: 20110817, end: 20111221
  42. PRAVATIN [Concomitant]
     Indication: HYPERLIPIDAEMIA
     Dosage: 10 mg
     Route: 048
     Dates: start: 20110817
  43. VALPROATE SODIUM [Concomitant]
     Indication: SCHIZOPHRENIA, UNDIFFERENTIATED TYPE
     Dosage: 600 mg
     Route: 048
     Dates: start: 20111216
  44. VALPROATE SODIUM [Concomitant]
     Dosage: 1200 mg
  45. VALPROATE SODIUM [Concomitant]
     Dosage: 600 mg
     Route: 048
  46. WYPAX [Concomitant]
     Indication: SCHIZOPHRENIA, UNDIFFERENTIATED TYPE
     Route: 048
     Dates: start: 20120106, end: 20120126

REACTIONS (3)
  - Liver disorder [Not Recovered/Not Resolved]
  - Aspartate aminotransferase increased [Unknown]
  - Alanine aminotransferase increased [Unknown]
